FAERS Safety Report 21125509 (Version 1)
Quarter: 2022Q3

REPORT INFORMATION
  Report Type: Spontaneous
  Country: JP (occurrence: JP)
  Receive Date: 20220725
  Receipt Date: 20220725
  Transmission Date: 20221027
  Serious: Yes (Death, Other)
  Sender: FDA-Public Use
  Company Number: JP-JAZZ-2022-JP-023899

PATIENT
  Age: 60 Year

DRUGS (1)
  1. DEFITELIO [Suspect]
     Active Substance: DEFIBROTIDE SODIUM
     Indication: Product used for unknown indication
     Dosage: UNK
     Route: 042
     Dates: start: 20220629, end: 20220706

REACTIONS (3)
  - Venoocclusive liver disease [Fatal]
  - Condition aggravated [Fatal]
  - Pericardial effusion [Fatal]

NARRATIVE: CASE EVENT DATE: 20220706
